FAERS Safety Report 10510286 (Version 1)
Quarter: 2014Q4

REPORT INFORMATION
  Report Type: Spontaneous
  Country: US (occurrence: None)
  Receive Date: 20141009
  Receipt Date: 20141009
  Transmission Date: 20150528
  Serious: Yes (Life-Threatening, Hospitalization)
  Sender: FDA-Public Use
  Company Number: None

PATIENT
  Age: 15 Year
  Sex: Female
  Weight: 42.18 kg

DRUGS (1)
  1. NUVARING [Suspect]
     Active Substance: ETHINYL ESTRADIOL\ETONOGESTREL
     Indication: DYSMENORRHOEA
     Dosage: EVERY 3 WEEKS
     Route: 067
     Dates: start: 20140207, end: 20140906

REACTIONS (48)
  - Irritability [None]
  - Dyspepsia [None]
  - Dysphoria [None]
  - Erythema [None]
  - Cells in urine [None]
  - Anger [None]
  - Dyspnoea [None]
  - Blindness [None]
  - Cold sweat [None]
  - Feeling hot [None]
  - Disturbance in attention [None]
  - Vein collapse [None]
  - Vomiting [None]
  - Haemorrhage [None]
  - Weight decreased [None]
  - Chest pain [None]
  - Palpitations [None]
  - Tremor [None]
  - Constipation [None]
  - Diarrhoea [None]
  - Panic attack [None]
  - Dizziness [None]
  - Nervousness [None]
  - Rash [None]
  - Decreased appetite [None]
  - Mood altered [None]
  - Hyperchlorhydria [None]
  - Eructation [None]
  - Chest discomfort [None]
  - Asthenia [None]
  - Melaena [None]
  - Fear [None]
  - Crying [None]
  - Euphoric mood [None]
  - Local swelling [None]
  - Dehydration [None]
  - Nausea [None]
  - Vomiting projectile [None]
  - Depersonalisation [None]
  - Pruritus [None]
  - Lip swelling [None]
  - Swelling face [None]
  - Ear congestion [None]
  - Depression [None]
  - Muscle spasms [None]
  - Anxiety [None]
  - Burning sensation [None]
  - Chills [None]

NARRATIVE: CASE EVENT DATE: 20140824
